FAERS Safety Report 5136423-5 (Version None)
Quarter: 2006Q4

REPORT INFORMATION
  Report Type: 
  Country: None (occurrence: None)
  Receive Date: 20061027
  Receipt Date: 20050824
  Transmission Date: 20070319
  Serious: No
  Sender: FDA-Public Use
  Company Number: US-BRISTOL-MYERS SQUIBB COMPANY-13088679

PATIENT

DRUGS (1)
  1. KENALOG-40 [Suspect]
     Indication: RHINITIS ALLERGIC
     Dosage: 40 MG/ML

REACTIONS (1)
  - DRUG INEFFECTIVE [None]
